FAERS Safety Report 26007542 (Version 1)
Quarter: 2025Q4

REPORT INFORMATION
  Report Type: Spontaneous
  Country: US (occurrence: None)
  Receive Date: 20251106
  Receipt Date: 20251106
  Transmission Date: 20260117
  Serious: Yes (Other)
  Sender: FDA-CTU
  Company Number: None

PATIENT
  Age: 70 Year
  Sex: Male

DRUGS (1)
  1. ORGOVYX [Suspect]
     Active Substance: RELUGOLIX
     Dosage: 120 MG DAILY ORAL?
     Route: 048
     Dates: start: 20250530, end: 20251004

REACTIONS (5)
  - Lip swelling [None]
  - Swelling face [None]
  - Urticaria [None]
  - Therapy cessation [None]
  - Therapy non-responder [None]
